FAERS Safety Report 17392087 (Version 1)
Quarter: 2020Q1

REPORT INFORMATION
  Report Type: Spontaneous
  Country: GB (occurrence: GB)
  Receive Date: 20200207
  Receipt Date: 20200207
  Transmission Date: 20200409
  Serious: Yes (Other)
  Sender: FDA-Public Use
  Company Number: GB-MYLANLABS-2020M1013624

PATIENT
  Age: 28 Year
  Sex: Female
  Weight: 70 kg

DRUGS (9)
  1. ALUMINIUM CHLORIDE HEXAHYDRATE [Concomitant]
     Dosage: AS DIRECTED
     Dates: start: 20140821
  2. NAPROXEN MYLAN [Suspect]
     Active Substance: NAPROXEN
     Indication: PRODUCT USED FOR UNKNOWN INDICATION
     Dosage: 250 MILLIGRAM
  3. ZINERYT [Concomitant]
     Dosage: APPLY
     Dates: start: 20190613
  4. FLUOXETINE [Concomitant]
     Active Substance: FLUOXETINE HYDROCHLORIDE
     Dosage: 3 DOSAGE FORM, QD
     Dates: start: 20170214
  5. FERROUS SULFATE. [Concomitant]
     Active Substance: FERROUS SULFATE
     Dosage: 1 DOSAGE FORM, QD
     Dates: start: 20191024
  6. FOLIC ACID. [Concomitant]
     Active Substance: FOLIC ACID
     Dosage: 1 DOSAGE FORM, QD
     Dates: start: 20190211
  7. ADCAL                              /00056901/ [Concomitant]
     Active Substance: CARBAZOCHROME
     Dosage: 1 DOSAGE FORM, QD
     Dates: start: 20180613
  8. PROPRANOLOL [Concomitant]
     Active Substance: PROPRANOLOL HYDROCHLORIDE
     Dosage: TO BE TAKEN UP TO THREE TIMES A DAY FOR ANX...
     Dates: start: 20171120
  9. DICLOFENAC SODIUM. [Concomitant]
     Active Substance: DICLOFENAC SODIUM
     Indication: PAIN
     Dosage: INSERT ONE DAILY
     Dates: start: 20191120

REACTIONS (1)
  - Lip swelling [Recovered/Resolved]
